FAERS Safety Report 4936257-8 (Version None)
Quarter: 2006Q1

REPORT INFORMATION
  Report Type: 
  Country: None (occurrence: None)
  Receive Date: 20060127
  Receipt Date: 20051028
  Transmission Date: 20060701
  Serious: Yes (Other)
  Sender: FDA-Public Use
  Company Number: 2005138562

PATIENT
  Age: 91 Year
  Sex: Male
  Weight: 61.2356 kg

DRUGS (1)
  1. LYRICA [Suspect]
     Indication: HERPES ZOSTER
     Dosage: 300 MG (150 MG,2 IN 1 D), ORAL
     Route: 048
     Dates: start: 20050901

REACTIONS (5)
  - COGNITIVE DISORDER [None]
  - DIZZINESS [None]
  - DRUG INEFFECTIVE [None]
  - PRURITUS [None]
  - SOMNOLENCE [None]
